FAERS Safety Report 6962038-X (Version None)
Quarter: 2010Q3

REPORT INFORMATION
  Report Type: 
  Country: None (occurrence: None)
  Receive Date: 20100902
  Receipt Date: 20100816
  Transmission Date: 20110219
  Serious: No
  Sender: FDA-Public Use
  Company Number: US-BAYER-201031162NA

PATIENT
  Sex: Female

DRUGS (1)
  1. MIRENA [Suspect]
     Indication: PRODUCT USED FOR UNKNOWN INDICATION
     Route: 015
     Dates: start: 20070101

REACTIONS (4)
  - FATIGUE [None]
  - FEELING OF BODY TEMPERATURE CHANGE [None]
  - NAUSEA [None]
  - URINARY TRACT INFECTION [None]
